FAERS Safety Report 24601882 (Version 1)
Quarter: 2024Q4

REPORT INFORMATION
  Report Type: Spontaneous
  Country: JP (occurrence: JP)
  Receive Date: 20241111
  Receipt Date: 20241111
  Transmission Date: 20250115
  Serious: Yes (Hospitalization)
  Sender: GLAXOSMITHKLINE
  Company Number: JP-GSKJP-JP2024JPN137091AA

PATIENT

DRUGS (2)
  1. DAPRODUSTAT [Suspect]
     Active Substance: DAPRODUSTAT
     Dosage: 10 MG
  2. FERROUS CITRATE [Concomitant]
     Active Substance: FERROUS CITRATE
     Dosage: UNK

REACTIONS (3)
  - Hypophagia [Unknown]
  - Dehydration [Unknown]
  - Haemoglobin increased [Unknown]
